FAERS Safety Report 9679230 (Version 2)
Quarter: 2015Q3

REPORT INFORMATION
  Report Type: Spontaneous
  Country: US (occurrence: US)
  Receive Date: 20131108
  Receipt Date: 20150723
  Transmission Date: 20151125
  Serious: Yes (Other)
  Sender: FDA-Public Use
  Company Number: US-JNJFOC-20131016565

PATIENT
  Age: 80 Year
  Sex: Female
  Weight: 81.19 kg

DRUGS (2)
  1. ZYRTEC [Suspect]
     Active Substance: CETIRIZINE HYDROCHLORIDE
     Indication: URTICARIA
     Route: 048
  2. ZYRTEC [Suspect]
     Active Substance: CETIRIZINE HYDROCHLORIDE
     Indication: URTICARIA
     Dosage: DOSAGE: HALF A TABLET
     Route: 048

REACTIONS (5)
  - Underdose [Unknown]
  - Somnolence [Not Recovered/Not Resolved]
  - Product use issue [Unknown]
  - Depression [Not Recovered/Not Resolved]
  - Adverse event [Unknown]
